FAERS Safety Report 12725709 (Version 1)
Quarter: 2016Q3

REPORT INFORMATION
  Report Type: Other
  Country: US (occurrence: US)
  Receive Date: 20160908
  Receipt Date: 20160908
  Transmission Date: 20161109
  Serious: No
  Sender: FDA-Public Use
  Company Number: US-COL_23133_2016

PATIENT
  Sex: Male

DRUGS (1)
  1. COLGATE TOTAL WHITENING GEL [Suspect]
     Active Substance: SODIUM FLUORIDE\TRICLOSAN
     Indication: PRODUCT USED FOR UNKNOWN INDICATION
     Dosage: FILLS TOOTHBRUSH FULL/BID/
     Route: 048
     Dates: start: 20160317, end: 20160324

REACTIONS (3)
  - Sensitivity of teeth [Not Recovered/Not Resolved]
  - Tooth injury [Not Recovered/Not Resolved]
  - Tooth disorder [Not Recovered/Not Resolved]

NARRATIVE: CASE EVENT DATE: 20160324
